FAERS Safety Report 25368854 (Version 1)
Quarter: 2025Q2

REPORT INFORMATION
  Report Type: Spontaneous
  Country: CN (occurrence: CN)
  Receive Date: 20250528
  Receipt Date: 20250528
  Transmission Date: 20250717
  Serious: Yes (Other)
  Sender: PFIZER
  Company Number: CN-PFIZER INC-202500108952

PATIENT

DRUGS (3)
  1. TYGACIL [Suspect]
     Active Substance: TIGECYCLINE
     Indication: Abdominal infection
  2. TYGACIL [Suspect]
     Active Substance: TIGECYCLINE
  3. POLYMYXIN [Concomitant]
     Active Substance: POLYMYXIN

REACTIONS (2)
  - Gastrointestinal haemorrhage [Unknown]
  - Hepatic function abnormal [Unknown]
